FAERS Safety Report 24281752 (Version 3)
Quarter: 2024Q4

REPORT INFORMATION
  Report Type: Spontaneous
  Country: US (occurrence: US)
  Receive Date: 20240904
  Receipt Date: 20241028
  Transmission Date: 20250114
  Serious: No
  Sender: PFIZER
  Company Number: US-PFIZER INC-202400247286

PATIENT
  Age: 31 Year
  Sex: Female

DRUGS (1)
  1. DEPO-PROVERA [Suspect]
     Active Substance: MEDROXYPROGESTERONE ACETATE
     Dosage: 1 SYRINGE EVERY 3 MONTHS
     Dates: start: 20240524

REACTIONS (3)
  - Injection site bruising [Unknown]
  - Poor quality device used [Unknown]
  - Syringe issue [Unknown]

NARRATIVE: CASE EVENT DATE: 20240818
